FAERS Safety Report 12357299 (Version 1)
Quarter: 2016Q2

REPORT INFORMATION
  Report Type: Report from Study
  Country: FR (occurrence: FR)
  Receive Date: 20160511
  Receipt Date: 20160511
  Transmission Date: 20160815
  Serious: Yes (Death, Hospitalization, Other)
  Sender: FDA-Public Use
  Company Number: FR-BRISTOL-MYERS SQUIBB COMPANY-BMS-2016-036149

PATIENT
  Age: 73 Year
  Sex: Male
  Weight: 75 kg

DRUGS (12)
  1. KARDEGIC [Concomitant]
     Active Substance: ASPIRIN LYSINE
     Indication: ANTICOAGULANT THERAPY
     Dosage: 160 MG, QD
     Route: 065
     Dates: start: 20120106, end: 20141216
  2. STAGID [Concomitant]
     Active Substance: METFORMIN PAMOATE
     Indication: DIABETES MELLITUS
     Dosage: 700 MG, BID
     Route: 065
     Dates: start: 20091218, end: 20141216
  3. ENTECAVIR. [Suspect]
     Active Substance: ENTECAVIR
     Indication: HEPATITIS B VIRUS TEST
     Dosage: 0.5 MG, QD
     Route: 065
     Dates: start: 20081212, end: 20141216
  4. JANUVIA [Concomitant]
     Active Substance: SITAGLIPTIN PHOSPHATE
     Indication: DIABETES MELLITUS
     Dosage: 100 MG, QD
     Route: 065
     Dates: start: 20131126, end: 20141216
  5. ATARAX [Concomitant]
     Active Substance: HYDROXYZINE\HYDROXYZINE HYDROCHLORIDE
     Indication: ANXIETY
     Dosage: 25 MG, QD
     Route: 065
     Dates: start: 20060602, end: 20141216
  6. GABAPENTINE [Concomitant]
     Active Substance: GABAPENTIN
     Indication: NEURALGIA
     Dosage: 100 MG, BID
     Route: 065
     Dates: end: 20141216
  7. AVLOCARDYL                         /00030001/ [Concomitant]
     Active Substance: PROPRANOLOL HYDROCHLORIDE
     Indication: NEURALGIA
     Dosage: 160 MG, QD
     Route: 065
     Dates: start: 20060727, end: 20141216
  8. PERMIXON [Concomitant]
     Active Substance: SAW PALMETTO
     Indication: DIABETES MELLITUS
     Dosage: 160 MG, BID
     Route: 065
     Dates: start: 20091218, end: 20141216
  9. EUPANTOL [Concomitant]
     Active Substance: PANTOPRAZOLE SODIUM
     Indication: FUNCTIONAL GASTROINTESTINAL DISORDER
     Dosage: 40 MG, QD
     Route: 065
     Dates: start: 20061115, end: 20141216
  10. NOVOMIX [Concomitant]
     Active Substance: INSULIN ASPART
     Indication: TYPE 2 DIABETES MELLITUS
     Dosage: 1 DF, BID
     Route: 065
     Dates: end: 20141216
  11. TAHOR [Concomitant]
     Active Substance: ATORVASTATIN CALCIUM
     Indication: HYPERCHOLESTEROLAEMIA
     Dosage: 10 MG, QD
     Route: 065
     Dates: end: 20141216
  12. PREVISCAN                          /00261401/ [Concomitant]
     Active Substance: PENTOXIFYLLINE
     Indication: ANTICOAGULANT THERAPY
     Dosage: QD
     Route: 065
     Dates: start: 20121207, end: 20141216

REACTIONS (6)
  - Oesophageal varices haemorrhage [Fatal]
  - Haematemesis [Fatal]
  - Ascites [Unknown]
  - Melaena [Fatal]
  - Packed red blood cell transfusion [Unknown]
  - Oesophageal variceal ligation [Unknown]

NARRATIVE: CASE EVENT DATE: 20140410
